FAERS Safety Report 9844066 (Version 1)
Quarter: 2014Q1

REPORT INFORMATION
  Report Type: Spontaneous
  Country: PL (occurrence: PL)
  Receive Date: 20140127
  Receipt Date: 20140127
  Transmission Date: 20141002
  Serious: Yes (Hospitalization, Other)
  Sender: FDA-Public Use
  Company Number: PL-AMGEN-POLSP2014004744

PATIENT
  Age: 58 Year
  Sex: Male

DRUGS (1)
  1. ENBREL [Suspect]
     Indication: RHEUMATOID ARTHRITIS
     Dosage: 50 MG, Q2WK
     Route: 065
     Dates: start: 201309, end: 201311

REACTIONS (11)
  - Renal failure [Not Recovered/Not Resolved]
  - Ascites [Unknown]
  - Blood creatinine increased [Unknown]
  - Blood pressure increased [Unknown]
  - Scrotal disorder [Unknown]
  - Acne [Unknown]
  - Psoriasis [Unknown]
  - Bronchitis [Unknown]
  - Pneumonia [Unknown]
  - Bronchopneumonia [Unknown]
  - Sinusitis [Unknown]
